FAERS Safety Report 24597722 (Version 2)
Quarter: 2025Q2

REPORT INFORMATION
  Report Type: Spontaneous
  Country: US (occurrence: US)
  Receive Date: 20241110
  Receipt Date: 20250510
  Transmission Date: 20250716
  Serious: No
  Sender: SANOFI AVENTIS
  Company Number: US-SA-2024SA309498

PATIENT
  Age: 46 Year
  Sex: Male
  Weight: 73.9 kg

DRUGS (1)
  1. DUPIXENT [Suspect]
     Active Substance: DUPILUMAB
     Indication: Nasal polyps
     Dosage: 300 MG, QOW
     Route: 058
     Dates: start: 2023

REACTIONS (9)
  - Nasal congestion [Unknown]
  - Hyposmia [Unknown]
  - Dyspnoea [Unknown]
  - Cough [Unknown]
  - Sneezing [Unknown]
  - Eczema [Unknown]
  - Therapeutic response decreased [Unknown]
  - Nasal polyps [Unknown]
  - Condition aggravated [Unknown]

NARRATIVE: CASE EVENT DATE: 20240101
